FAERS Safety Report 4309053-2 (Version None)
Quarter: 2004Q1

REPORT INFORMATION
  Report Type: 
  Country: None (occurrence: None)
  Receive Date: 20040302
  Receipt Date: 20040225
  Transmission Date: 20041129
  Serious: Yes (Other)
  Sender: FDA-Public Use
  Company Number: 200411490US

PATIENT
  Age: 43 Year
  Sex: Female

DRUGS (6)
  1. LANTUS [Suspect]
     Indication: DIABETES MELLITUS
     Dosage: DOSE UNIT: UNITS
  2. AMARYL [Concomitant]
     Dosage: DOSE: NOT PROVIDED
  3. GLUCOPHAGE [Concomitant]
     Dosage: DOSE: NOT PROVIDED
  4. DIOVAN [Concomitant]
     Dosage: DOSE: NOT PROVIDED
  5. HYDROCHLOROTHIAZIDE [Concomitant]
     Dosage: DOSE: NOT PROVIDED
  6. ESTRACE [Concomitant]
     Dosage: DOSE: NOT PROVIDED

REACTIONS (4)
  - ABDOMINAL PAIN [None]
  - COLITIS [None]
  - COLLAGEN DISORDER [None]
  - DIARRHOEA [None]
